FAERS Safety Report 16881037 (Version 8)
Quarter: 2020Q1

REPORT INFORMATION
  Report Type: Spontaneous
  Country: US (occurrence: US)
  Receive Date: 20191003
  Receipt Date: 20200110
  Transmission Date: 20200409
  Serious: Yes (Hospitalization, Other)
  Sender: FDA-Public Use
  Company Number: US-PFIZER INC-2019426617

PATIENT
  Age: 59 Year
  Sex: Female
  Weight: 113 kg

DRUGS (3)
  1. LYRICA [Suspect]
     Active Substance: PREGABALIN
     Indication: DIABETIC NEUROPATHY
     Dosage: 75 MG, 2X/DAY
     Dates: start: 2016
  2. LYRICA [Suspect]
     Active Substance: PREGABALIN
     Indication: SCIATICA
     Dosage: 150 MG, 3X/DAY
     Route: 048
  3. INSULIN [Concomitant]
     Active Substance: INSULIN NOS
     Indication: DIABETES MELLITUS
     Dosage: UNK

REACTIONS (12)
  - Intentional product misuse [Unknown]
  - Panic attack [Unknown]
  - Pain [Unknown]
  - Malaise [Unknown]
  - Sepsis [Recovering/Resolving]
  - Therapeutic product effect incomplete [Recovered/Resolved]
  - Nervousness [Unknown]
  - Drug dependence [Unknown]
  - Blood culture positive [Unknown]
  - Pyrexia [Recovered/Resolved]
  - Headache [Recovering/Resolving]
  - Urinary tract infection [Unknown]

NARRATIVE: CASE EVENT DATE: 201910
